FAERS Safety Report 15689261 (Version 2)
Quarter: 2019Q1

REPORT INFORMATION
  Report Type: Report from Study
  Country: CA (occurrence: CA)
  Receive Date: 20181205
  Receipt Date: 20190128
  Transmission Date: 20190417
  Serious: Yes (Other)
  Sender: FDA-Public Use
  Company Number: PHHY2018CA077454

PATIENT
  Age: 68 Year
  Sex: Female

DRUGS (1)
  1. KISQALI [Suspect]
     Active Substance: RIBOCICLIB
     Indication: BREAST CANCER METASTATIC
     Dosage: UNK
     Route: 048
     Dates: start: 20180705, end: 20190123

REACTIONS (6)
  - Haemoglobin decreased [Unknown]
  - Full blood count decreased [Unknown]
  - Renal impairment [Unknown]
  - Platelet count decreased [Unknown]
  - Cardiac dysfunction [Unknown]
  - Malaise [Unknown]

NARRATIVE: CASE EVENT DATE: 20181031
